FAERS Safety Report 6383896-6 (Version None)
Quarter: 2009Q4

REPORT INFORMATION
  Report Type: 
  Country: None (occurrence: None)
  Receive Date: 20091001
  Receipt Date: 20090924
  Transmission Date: 20100525
  Serious: Yes (Death, Hospitalization)
  Sender: FDA-Public Use
  Company Number: US-ABBOTT-09P-163-0598844-00

PATIENT
  Sex: Male

DRUGS (1)
  1. LUPRON DEPOT [Suspect]
     Indication: PROSTATE CANCER
     Dates: start: 20071201, end: 20080601

REACTIONS (3)
  - CARDIAC FAILURE CONGESTIVE [None]
  - PROSTATE CANCER METASTATIC [None]
  - PROSTATIC SPECIFIC ANTIGEN INCREASED [None]
